FAERS Safety Report 7963045 (Version 4)
Quarter: 2012Q4

REPORT INFORMATION
  Report Type: Report from Study
  Country: DE (occurrence: DE)
  Receive Date: 20110526
  Receipt Date: 20121017
  Transmission Date: 20130627
  Serious: Yes (Hospitalization, Other)
  Sender: FDA-Public Use
  Company Number: DE-ABBOTT-11P-062-0727813-00

PATIENT
  Age: 33 None
  Sex: Male

DRUGS (10)
  1. HUMIRA 40 MG/0.8 ML PEN [Suspect]
     Indication: CROHN^S DISEASE
     Route: 058
     Dates: start: 20060506, end: 201103
  2. HUMIRA 40 MG/0.8 ML PEN [Suspect]
     Route: 058
     Dates: start: 201105
  3. LOPERAMIDE [Suspect]
     Indication: PRODUCT USED FOR UNKNOWN INDICATION
  4. QUANTALAN [Concomitant]
     Indication: PRODUCT USED FOR UNKNOWN INDICATION
  5. FERROSANOL [Concomitant]
     Indication: PRODUCT USED FOR UNKNOWN INDICATION
  6. VITAMIN B-12 [Concomitant]
     Indication: PRODUCT USED FOR UNKNOWN INDICATION
     Route: 058
  7. METRONIDAZOL [Concomitant]
     Indication: PRODUCT USED FOR UNKNOWN INDICATION
     Route: 048
  8. PREDNISOLON [Concomitant]
     Indication: PRODUCT USED FOR UNKNOWN INDICATION
  9. PANTOPRAZOL [Concomitant]
     Indication: PRODUCT USED FOR UNKNOWN INDICATION
  10. NOVALGIN [Concomitant]
     Indication: PRODUCT USED FOR UNKNOWN INDICATION
     Dosage: Four times

REACTIONS (12)
  - Gastrointestinal stenosis [Recovering/Resolving]
  - Abscess intestinal [Recovering/Resolving]
  - Condition aggravated [Recovered/Resolved]
  - General physical health deterioration [Recovered/Resolved]
  - Adhesiolysis [Recovered/Resolved]
  - Intestinal stenosis [Recovered/Resolved]
  - Intestinal fistula [Recovered/Resolved]
  - Lymphadenitis [Recovered/Resolved]
  - Retroperitoneal abscess [Recovered/Resolved]
  - Haemoglobin decreased [Recovered/Resolved]
  - Proctalgia [Not Recovered/Not Resolved]
  - Anal pruritus [Not Recovered/Not Resolved]
